FAERS Safety Report 4442882-3 (Version None)
Quarter: 2004Q3

REPORT INFORMATION
  Report Type: 
  Country: None (occurrence: None)
  Receive Date: 20040907
  Receipt Date: 20040907
  Transmission Date: 20050211
  Serious: Yes (Hospitalization)
  Sender: FDA-Public Use
  Company Number: None

PATIENT
  Age: 80 Year
  Sex: Male
  Weight: 76.2043 kg

DRUGS (1)
  1. SPIRONOLACTONE AND HYDROCHLOROTHIAZIDE [Suspect]
     Dosage: 25 MG / 25 MG QD
     Dates: start: 20040525, end: 20040602

REACTIONS (1)
  - HYPONATRAEMIA [None]
